FAERS Safety Report 11832438 (Version 1)
Quarter: 2015Q4

REPORT INFORMATION
  Report Type: Spontaneous
  Country: US (occurrence: US)
  Receive Date: 20151214
  Receipt Date: 20151214
  Transmission Date: 20160305
  Serious: No
  Sender: FDA-Public Use
  Company Number: US-PFIZER INC-2015424953

PATIENT
  Age: 52 Year
  Sex: Female

DRUGS (10)
  1. MILK THISTLE [Concomitant]
     Active Substance: MILK THISTLE
  2. PROBIOTIC [Concomitant]
     Active Substance: PROBIOTICS NOS
  3. ZANTAC [Concomitant]
     Active Substance: RANITIDINE HYDROCHLORIDE
  4. ADVIL [Concomitant]
     Active Substance: IBUPROFEN
  5. PREVACID [Concomitant]
     Active Substance: LANSOPRAZOLE
  6. ALEVE [Concomitant]
     Active Substance: NAPROXEN SODIUM
  7. TYLENOL [Concomitant]
     Active Substance: ACETAMINOPHEN
  8. CORTISONE ACETATE. [Suspect]
     Active Substance: CORTISONE ACETATE
     Dosage: UNK
  9. ECOTRIN [Concomitant]
     Active Substance: ASPIRIN
  10. GLUCOSAMINE [Concomitant]
     Active Substance: GLUCOSAMINE

REACTIONS (1)
  - Drug hypersensitivity [Unknown]
